FAERS Safety Report 8449951-1 (Version None)
Quarter: 2012Q2

REPORT INFORMATION
  Report Type: 
  Country: None (occurrence: None)
  Receive Date: 20120620
  Receipt Date: 20120613
  Transmission Date: 20120825
  Serious: Yes (Other)
  Sender: FDA-Public Use
  Company Number: PHFR2011GB007255

PATIENT
  Sex: Female
  Weight: 55 kg

DRUGS (5)
  1. NORMACOL PLUS [Concomitant]
     Dosage: 1 TSP, QHS
     Route: 048
     Dates: start: 20120208
  2. OMEPRAZOLE [Concomitant]
     Dosage: 20 MG, BID
     Route: 048
     Dates: start: 20110614
  3. DISIPAL [Concomitant]
     Dosage: 50 MG, MANE
     Route: 048
     Dates: start: 20120321
  4. SIMVASTATIN [Concomitant]
     Dosage: 10 MG, QHS
     Route: 048
     Dates: start: 20111117
  5. CLOZARIL [Suspect]
     Dosage: UNK UKN, UNK
     Route: 048
     Dates: start: 20070124

REACTIONS (4)
  - JOINT SWELLING [None]
  - URINARY TRACT INFECTION [None]
  - LOWER RESPIRATORY TRACT INFECTION [None]
  - ARTHRALGIA [None]
